FAERS Safety Report 7300914-9 (Version None)
Quarter: 2011Q1

REPORT INFORMATION
  Report Type: 
  Country: None (occurrence: None)
  Receive Date: 20110218
  Receipt Date: 20110204
  Transmission Date: 20110831
  Serious: Yes (Hospitalization, Disabling)
  Sender: FDA-Public Use
  Company Number: BE-MYLANLABS-2009S1000709

PATIENT
  Age: 35 Year
  Sex: Male

DRUGS (3)
  1. TRAZODONE [Suspect]
     Dosage: THE PRESCRIBED DOSE WAS 150 MG AT NIGHT BUT THE MAN USED 300 MG SEVERAL TIMES
  2. TRAZODONE [Suspect]
     Indication: DYSSOMNIA
     Dosage: 150 MG/DAY
  3. ACENOCOUMAROL [Concomitant]

REACTIONS (3)
  - PRIAPISM [None]
  - PENILE VEIN THROMBOSIS [None]
  - PENILE NECROSIS [None]
